FAERS Safety Report 11822093 (Version 2)
Quarter: 2016Q1

REPORT INFORMATION
  Report Type: Spontaneous
  Country: US (occurrence: US)
  Receive Date: 20151210
  Receipt Date: 20160202
  Transmission Date: 20160525
  Serious: No
  Sender: FDA-Public Use
  Company Number: US-JNJFOC-20150722215

PATIENT
  Sex: Male
  Weight: 126 kg

DRUGS (2)
  1. IMBRUVICA [Suspect]
     Active Substance: IBRUTINIB
     Indication: LYMPHOMA
     Route: 048
     Dates: start: 20131218
  2. IMBRUVICA [Suspect]
     Active Substance: IBRUTINIB
     Indication: B-CELL LYMPHOMA STAGE III
     Route: 048
     Dates: start: 20131218

REACTIONS (8)
  - Diarrhoea [Unknown]
  - Application site pain [Unknown]
  - Fatigue [Recovered/Resolved]
  - Arthralgia [Unknown]
  - Pruritus [Unknown]
  - Bronchitis [Unknown]
  - Rash [Unknown]
  - Pyrexia [Unknown]

NARRATIVE: CASE EVENT DATE: 2013
